FAERS Safety Report 4719218-3 (Version None)
Quarter: 2005Q3

REPORT INFORMATION
  Report Type: 
  Country: None (occurrence: None)
  Receive Date: 20050718
  Receipt Date: 20040802
  Transmission Date: 20060218
  Serious: Yes (Other)
  Sender: FDA-Public Use
  Company Number: PHEH2004US07438

PATIENT
  Age: 36 Year
  Sex: Female

DRUGS (2)
  1. LOTENSIN HCT [Suspect]
     Indication: HYPERTENSION
     Dosage: 10 MG BENAZ/12.5 MG HCT
     Dates: start: 20040201, end: 20040617
  2. HUMALOG [Concomitant]

REACTIONS (6)
  - ANGIONEUROTIC OEDEMA [None]
  - BLOOD PRESSURE INCREASED [None]
  - DYSPHAGIA [None]
  - OROPHARYNGEAL SWELLING [None]
  - SWOLLEN TONGUE [None]
  - TACHYCARDIA [None]
